FAERS Safety Report 17712913 (Version 1)
Quarter: 2020Q2

REPORT INFORMATION
  Report Type: Spontaneous
  Country: US (occurrence: US)
  Receive Date: 20200427
  Receipt Date: 20200427
  Transmission Date: 20200714
  Serious: Yes (Other)
  Sender: FDA-Public Use
  Company Number: US-UCBSA-2020017298

PATIENT
  Sex: Female

DRUGS (2)
  1. CIMZIA [Suspect]
     Active Substance: CERTOLIZUMAB PEGOL
     Indication: PRODUCT USED FOR UNKNOWN INDICATION
     Dosage: UNK
  2. CAMILA [Interacting]
     Active Substance: NORETHINDRONE
     Indication: CONTRACEPTION
     Dosage: UNK

REACTIONS (3)
  - Menorrhagia [Unknown]
  - Drug interaction [Unknown]
  - Dizziness [Unknown]
